FAERS Safety Report 7461671-9 (Version None)
Quarter: 2011Q2

REPORT INFORMATION
  Report Type: 
  Country: None (occurrence: None)
  Receive Date: 20110506
  Receipt Date: 20110421
  Transmission Date: 20111010
  Serious: No
  Sender: FDA-Public Use
  Company Number: US-B.I. PHARMACEUTICALS,INC./RIDGEFIELD-2011-BP-02731BP

PATIENT
  Sex: Male

DRUGS (10)
  1. PRADAXA [Suspect]
     Indication: DRUG THERAPY CHANGED
  2. METFORMIN HCL [Concomitant]
     Dosage: 1000 MG
  3. WARFARIN SODIUM [Concomitant]
  4. PRADAXA [Suspect]
     Indication: ANTICOAGULANT THERAPY
     Dosage: 300 MG
  5. CENTRUM SILVER VITAMIN [Concomitant]
  6. ASPIRIN [Concomitant]
  7. TAMSULOSIN HCL [Concomitant]
     Dosage: 0.4 MG
  8. ALLOPURINOL [Concomitant]
     Dosage: 300 MG
  9. DILTIAZEM [Concomitant]
     Dosage: 360 MG
  10. LISINOPRIL [Concomitant]
     Dosage: 20 MG

REACTIONS (6)
  - AMNESIA [None]
  - DEPRESSED MOOD [None]
  - SKIN DISORDER [None]
  - DIZZINESS [None]
  - HEADACHE [None]
  - VISUAL IMPAIRMENT [None]
